FAERS Safety Report 14519554 (Version 1)
Quarter: 2018Q1

REPORT INFORMATION
  Report Type: Spontaneous
  Country: AT (occurrence: AT)
  Receive Date: 20180212
  Receipt Date: 20180212
  Transmission Date: 20180509
  Serious: Yes (Other)
  Sender: FDA-Public Use
  Company Number: AT-ELI_LILLY_AND_COMPANY-AT201802002734

PATIENT

DRUGS (12)
  1. IRINOTECAN HYDROCHLORIDE. [Suspect]
     Active Substance: IRINOTECAN HYDROCHLORIDE
     Dosage: UNK UNK, UNKNOWN
     Route: 065
     Dates: start: 201704, end: 201706
  2. OXALIPLATIN. [Suspect]
     Active Substance: OXALIPLATIN
     Indication: COLORECTAL CANCER METASTATIC
     Dosage: UNK UNK, UNKNOWN
     Dates: start: 201607
  3. FOLINATE CALCIUM [Suspect]
     Active Substance: LEUCOVORIN CALCIUM
     Dosage: UNK UNK, UNKNOWN
     Route: 065
     Dates: start: 201607, end: 201612
  4. IRINOTECAN HYDROCHLORIDE. [Suspect]
     Active Substance: IRINOTECAN HYDROCHLORIDE
     Indication: COLORECTAL CANCER METASTATIC
     Dosage: UNK UNK, UNKNOWN
     Route: 065
     Dates: start: 201510, end: 201604
  5. ERBITUX [Suspect]
     Active Substance: CETUXIMAB
     Dosage: MAINTENANCE TREATMENT, UNKNOWN
     Route: 065
     Dates: start: 201701, end: 201704
  6. FOLINATE CALCIUM [Suspect]
     Active Substance: LEUCOVORIN CALCIUM
     Indication: COLORECTAL CANCER METASTATIC
     Dosage: UNK UNK, UNKNOWN
     Route: 065
     Dates: start: 201510, end: 201604
  7. FOLINATE CALCIUM [Suspect]
     Active Substance: LEUCOVORIN CALCIUM
     Dosage: UNK UNK, UNKNOWN
     Route: 065
     Dates: start: 201704, end: 201706
  8. FLUOROURACIL. [Suspect]
     Active Substance: FLUOROURACIL
     Indication: COLORECTAL CANCER METASTATIC
     Dosage: UNK UNK, UNKNOWN
     Route: 065
     Dates: start: 201510, end: 201604
  9. FLUOROURACIL. [Suspect]
     Active Substance: FLUOROURACIL
     Dosage: UNK UNK, UNKNOWN
     Route: 065
     Dates: start: 201607, end: 201612
  10. ERBITUX [Suspect]
     Active Substance: CETUXIMAB
     Indication: COLORECTAL CANCER METASTATIC
     Dosage: UNK UNK, UNKNOWN
     Route: 065
     Dates: start: 201510, end: 201604
  11. FLUOROURACIL. [Suspect]
     Active Substance: FLUOROURACIL
     Dosage: UNK UNK, UNKNOWN
     Route: 065
     Dates: start: 201704, end: 201706
  12. BEVACIZUMAB. [Suspect]
     Active Substance: BEVACIZUMAB
     Indication: COLORECTAL CANCER METASTATIC
     Dosage: UNK UNK, UNKNOWN
     Route: 065
     Dates: start: 201704, end: 201706

REACTIONS (2)
  - Malignant neoplasm progression [Unknown]
  - Neuropathy peripheral [Unknown]
